FAERS Safety Report 8185675 (Version 2)
Quarter: 2016Q3

REPORT INFORMATION
  Report Type: Spontaneous
  Country: US (occurrence: US)
  Receive Date: 20111018
  Receipt Date: 20160930
  Transmission Date: 20161109
  Serious: Yes (Other)
  Sender: FDA-Public Use
  Company Number: US-ASTRAZENECA-2011SE26803

PATIENT
  Age: 78 Year
  Sex: Female
  Weight: 79.4 kg

DRUGS (7)
  1. SYMBICORT [Suspect]
     Active Substance: BUDESONIDE\FORMOTEROL FUMARATE DIHYDRATE
     Indication: EMPHYSEMA
     Dosage: 160 AND 4.5 TWO PUFFS TWICE A DAY
     Route: 055
     Dates: start: 2013
  2. ALLERGY PILL [Concomitant]
     Active Substance: UNSPECIFIED INGREDIENT
  3. SYMBICORT [Suspect]
     Active Substance: BUDESONIDE\FORMOTEROL FUMARATE DIHYDRATE
     Indication: CHRONIC OBSTRUCTIVE PULMONARY DISEASE
     Dosage: 160 AND 4.5 TWO PUFFS TWICE A DAY
     Route: 055
     Dates: start: 2013
  4. BLOOD PRESSURE PILL [Concomitant]
     Active Substance: UNSPECIFIED INGREDIENT
  5. WATER PILL [Concomitant]
     Active Substance: UNSPECIFIED INGREDIENT
  6. CRESTOR [Suspect]
     Active Substance: ROSUVASTATIN CALCIUM
     Indication: BLOOD CHOLESTEROL INCREASED
     Route: 048
     Dates: start: 2013
  7. NEXIUM [Suspect]
     Active Substance: ESOMEPRAZOLE MAGNESIUM
     Indication: DYSPEPSIA
     Route: 048

REACTIONS (11)
  - Pulmonary thrombosis [Recovering/Resolving]
  - Influenza [Unknown]
  - Blood cholesterol increased [Unknown]
  - Fall [Unknown]
  - Dyspepsia [Unknown]
  - Nasopharyngitis [Recovering/Resolving]
  - Fluid retention [Recovering/Resolving]
  - Fatigue [Unknown]
  - Emphysema [Unknown]
  - Asthenia [Unknown]
  - Drug dose omission [Not Recovered/Not Resolved]

NARRATIVE: CASE EVENT DATE: 201609
